FAERS Safety Report 23404100 (Version 2)
Quarter: 2024Q3

REPORT INFORMATION
  Report Type: Spontaneous
  Country: DE (occurrence: DE)
  Receive Date: 20240116
  Receipt Date: 20240710
  Transmission Date: 20241016
  Serious: Yes (Death)
  Sender: DR REDDYS
  Company Number: None

PATIENT
  Age: 69 Year
  Sex: Male

DRUGS (13)
  1. AZACITIDINE [Suspect]
     Active Substance: AZACITIDINE
     Indication: Acute myeloid leukaemia
     Dosage: START DATE: SEP-2021
  2. OXALIPLATIN [Suspect]
     Active Substance: OXALIPLATIN
     Indication: Cholangiocarcinoma
     Dosage: CYCLICAL FOLFOX REGIMEN EVERY 2 WEEKS; INCLUDING OXALIPLATIN 100 MG/M2, FOLIC ACID 400 MG/M2 AND FLU
     Route: 065
     Dates: start: 201907, end: 202002
  3. FLUOROURACIL [Suspect]
     Active Substance: FLUOROURACIL
     Indication: Cholangiocarcinoma
     Dosage: CYCLICAL FOLFOX REGIMEN EVERY 2 WEEKS; INCLUDING OXALIPLATIN 100 MG/M2, FOLIC ACID 400 MG/M2 AND FLU
     Route: 065
     Dates: start: 201907, end: 202002
  4. FLUOROURACIL [Suspect]
     Active Substance: FLUOROURACIL
     Dosage: 2400?MG/M2 AS 48H INFUSION EVERY 2?WEEKS AS A PART OF  FOLFIRI REGIMEN
     Dates: start: 202002
  5. FLUOROURACIL [Suspect]
     Active Substance: FLUOROURACIL
     Dosage: 3000?MG/M2 AS 48H INFUSION EVERY 2?WEEKS AS A PART OF FOLFOX REGIMEN
     Dates: start: 201907, end: 202002
  6. FLUOROURACIL [Suspect]
     Active Substance: FLUOROURACIL
     Dosage: CYCLICAL FOLFIRI REGIMEN EVERY 2 WEEKS INCLUDING IRINOTECAN 180 MG/M2, FOLIC ACID 400 MG/M2 AND FLUO
     Route: 065
     Dates: start: 202002
  7. IRINOTECAN [Suspect]
     Active Substance: IRINOTECAN
     Indication: Cholangiocarcinoma
     Dosage: CYCLICAL FOLFIRI REGIMEN EVERY 2 WEEKS INCLUDING IRINOTECAN 180 MG/M2, FOLIC ACID 400 MG/M2 AND FLUO
     Route: 065
     Dates: start: 202002
  8. PEMIGATINIB [Suspect]
     Active Substance: PEMIGATINIB
     Indication: Cholangiocarcinoma
     Dosage: FOR 2?WEEKS, FOLLOWED BY 1?WEEK PAUSE
     Route: 065
     Dates: start: 202005
  9. PEMIGATINIB [Suspect]
     Active Substance: PEMIGATINIB
     Dosage: FOR 2?WEEKS, FOLLOWED BY 1?WEEK PAUSE
     Route: 065
  10. FOLIC ACID [Suspect]
     Active Substance: FOLIC ACID
     Indication: Cholangiocarcinoma
     Dosage: CYCLICAL FOLFOX REGIMEN EVERY 2 WEEKS; INCLUDING OXALIPLATIN 100 MG/M2, FOLIC ACID 400 MG/M2 AND FLU
     Route: 050
     Dates: start: 201907, end: 202002
  11. FOLIC ACID [Suspect]
     Active Substance: FOLIC ACID
     Dosage: CYCLICAL FOLFIRI REGIMEN EVERY 2 WEEKS INCLUDING IRINOTECAN 180 MG/M2, FOLIC ACID 400 MG/M2 AND FLUO
     Dates: start: 202002
  12. CISPLATIN [Suspect]
     Active Substance: CISPLATIN
     Indication: Cholangiocarcinoma
     Dosage: ON DAY?1 AND 8
     Route: 065
     Dates: start: 201711, end: 201907
  13. GEMCITABINE [Suspect]
     Active Substance: GEMCITABINE
     Indication: Cholangiocarcinoma
     Dosage: ON DAY?1 AND 8
     Route: 065
     Dates: start: 201711, end: 201907

REACTIONS (5)
  - Acute myeloid leukaemia [Fatal]
  - Disease progression [Fatal]
  - Pneumonia [Fatal]
  - Off label use [Fatal]
  - Treatment failure [Unknown]

NARRATIVE: CASE EVENT DATE: 20210101
